FAERS Safety Report 7260958-2 (Version None)
Quarter: 2011Q1

REPORT INFORMATION
  Report Type: 
  Country: None (occurrence: None)
  Receive Date: 20110130
  Receipt Date: 20101122
  Transmission Date: 20110831
  Serious: No
  Sender: FDA-Public Use
  Company Number: US-ABBOTT-10P-163-0687362-00

PATIENT
  Age: 31 Year
  Sex: Female

DRUGS (1)
  1. HUMIRA [Suspect]
     Indication: ARTHRITIS
     Dates: start: 20100201

REACTIONS (7)
  - PYREXIA [None]
  - BLISTER [None]
  - JOINT SWELLING [None]
  - NASAL DRYNESS [None]
  - MUSCULOSKELETAL PAIN [None]
  - PAIN [None]
  - OEDEMA PERIPHERAL [None]
